APPROVED DRUG PRODUCT: NOVAMINE 15% SULFITE FREE IN PLASTIC CONTAINER
Active Ingredient: AMINO ACIDS
Strength: 15% (15GM/100ML) **Federal Register determination that product was not discontinued or withdrawn for safety or effectiveness reasons**
Dosage Form/Route: INJECTABLE;INJECTION
Application: N020107 | Product #001
Applicant: BAXTER HEALTHCARE CORP
Approved: Feb 5, 1993 | RLD: No | RS: No | Type: DISCN